FAERS Safety Report 19610590 (Version 1)
Quarter: 2021Q3

REPORT INFORMATION
  Report Type: Spontaneous
  Country: US (occurrence: US)
  Receive Date: 20210726
  Receipt Date: 20210726
  Transmission Date: 20211014
  Serious: No
  Sender: FDA-Public Use
  Company Number: US-PFIZER INC-2021746430

PATIENT
  Age: 56 Year
  Sex: Female

DRUGS (1)
  1. IBRANCE [Suspect]
     Active Substance: PALBOCICLIB
     Dosage: 125 MG
     Dates: start: 20210418

REACTIONS (5)
  - Aphthous ulcer [Unknown]
  - Epistaxis [Unknown]
  - Gingival bleeding [Unknown]
  - Diarrhoea [Unknown]
  - Decreased appetite [Unknown]
